FAERS Safety Report 8402279-8 (Version None)
Quarter: 2012Q2

REPORT INFORMATION
  Report Type: 
  Country: None (occurrence: None)
  Receive Date: 20120601
  Receipt Date: 20120523
  Transmission Date: 20120825
  Serious: Yes (Death, Life-Threatening)
  Sender: FDA-Public Use
  Company Number: NO-BRISTOL-MYERS SQUIBB COMPANY-16617524

PATIENT
  Age: 72 Year
  Sex: Female

DRUGS (9)
  1. VEPESID [Suspect]
     Indication: LUNG NEOPLASM MALIGNANT
     Dosage: 100 MG/M2 ALSO 350MG:17-MAR12 TO 18MAR12(ALSO 200MG/M2):2DYS 1-3
     Route: 042
     Dates: start: 20120316
  2. ACETAMINOPHEN [Concomitant]
  3. METOPROLOL SUCCINATE [Concomitant]
     Route: 048
  4. CISPLATIN [Suspect]
     Indication: LUNG NEOPLASM MALIGNANT
     Dosage: 75 MG/M*2
     Route: 042
     Dates: start: 20120316
  5. ADALAT [Concomitant]
     Route: 048
  6. TRAMADOL HCL [Concomitant]
     Route: 048
  7. ENALAPRIL MALEATE [Concomitant]
     Route: 048
  8. SIMVASTATIN [Concomitant]
     Dosage: 1 TABLET AT BEDTIME
     Route: 048
  9. ASPIRIN [Concomitant]
     Route: 048

REACTIONS (10)
  - HEPATIC FAILURE [None]
  - HAEMATOTOXICITY [None]
  - THROMBOCYTOPENIA [None]
  - SEPSIS [None]
  - RESPIRATORY FAILURE [None]
  - ANAEMIA [None]
  - NEUTROPENIA [None]
  - RENAL FAILURE [None]
  - LEUKOPENIA [None]
  - SEPTIC SHOCK [None]
